FAERS Safety Report 23741661 (Version 1)
Quarter: 2024Q2

REPORT INFORMATION
  Report Type: Spontaneous
  Country: US (occurrence: US)
  Receive Date: 20240415
  Receipt Date: 20240415
  Transmission Date: 20240716
  Serious: Yes (Other)
  Sender: FDA-Public Use
  Company Number: US-ASTELLAS-2023US016154

PATIENT
  Age: 69 Year
  Sex: Female

DRUGS (5)
  1. LEXISCAN [Suspect]
     Active Substance: REGADENOSON
     Indication: Cardiac arrest
     Dosage: 0.4 MG/5ML, UNKNOWN FREQ.
     Route: 065
     Dates: start: 20230505
  2. LEXISCAN [Suspect]
     Active Substance: REGADENOSON
     Indication: Cardiac arrest
     Dosage: 0.4 MG/5ML, UNKNOWN FREQ.
     Route: 065
     Dates: start: 20230505
  3. LEXISCAN [Suspect]
     Active Substance: REGADENOSON
     Indication: Cardiac arrest
     Dosage: 0.4 MG/5ML, UNKNOWN FREQ.
     Route: 065
     Dates: start: 20230505
  4. LEXISCAN [Suspect]
     Active Substance: REGADENOSON
     Indication: Cardiac arrest
     Dosage: 0.4 MG/5ML, UNKNOWN FREQ.
     Route: 065
     Dates: start: 20230505
  5. CRESTOR [Concomitant]
     Active Substance: ROSUVASTATIN CALCIUM
     Indication: Blood cholesterol increased
     Dosage: UNK UNK, UNKNOWN FREQ.
     Route: 065

REACTIONS (6)
  - Bradycardia [Recovered/Resolved]
  - Electrocardiogram abnormal [Unknown]
  - Blood glucose decreased [Recovered/Resolved]
  - Nausea [Recovered/Resolved]
  - Blood pressure decreased [Recovered/Resolved]
  - Off label use [Unknown]

NARRATIVE: CASE EVENT DATE: 20230505
